FAERS Safety Report 18286043 (Version 4)
Quarter: 2021Q1

REPORT INFORMATION
  Report Type: Report from Study
  Country: AR (occurrence: AR)
  Receive Date: 20200919
  Receipt Date: 20210205
  Transmission Date: 20210419
  Serious: Yes (Other)
  Sender: FDA-Public Use
  Company Number: AR-INCYTE CORPORATION-2020IN008793

PATIENT

DRUGS (2)
  1. JAKAVI [Suspect]
     Active Substance: RUXOLITINIB
     Indication: MYELOFIBROSIS
     Dosage: 15 MG, BID
     Route: 048
     Dates: start: 20150301
  2. JAKAVI [Suspect]
     Active Substance: RUXOLITINIB
     Dosage: 30 MG
     Route: 048
     Dates: start: 20150311

REACTIONS (14)
  - Total lung capacity decreased [Unknown]
  - Confusional state [Unknown]
  - Nephrolithiasis [Unknown]
  - Total lung capacity increased [Unknown]
  - Wrong technique in product usage process [Unknown]
  - Dyspnoea [Unknown]
  - Renal pain [Unknown]
  - Abdominal pain [Unknown]
  - Agitation [Unknown]
  - Thrombosis [Unknown]
  - Off label use [Unknown]
  - Feeling abnormal [Unknown]
  - Dizziness [Unknown]
  - Vomiting [Unknown]

NARRATIVE: CASE EVENT DATE: 20200202
